FAERS Safety Report 15982475 (Version 2)
Quarter: 2019Q1

REPORT INFORMATION
  Report Type: Spontaneous
  Country: CH (occurrence: CH)
  Receive Date: 20190219
  Receipt Date: 20190226
  Transmission Date: 20190418
  Serious: Yes (Hospitalization, Other)
  Sender: FDA-Public Use
  Company Number: CH-PFIZER INC-2019067643

PATIENT
  Age: 78 Year
  Sex: Female

DRUGS (41)
  1. MABTHERA [Suspect]
     Active Substance: RITUXIMAB
     Dosage: 670 MG, CYCLIC (CYCLE 3)
     Route: 042
     Dates: start: 20181127, end: 20181127
  2. MABTHERA [Suspect]
     Active Substance: RITUXIMAB
     Dosage: 670 MG, CYCLIC (CYCLE 4)
     Route: 042
     Dates: start: 20181218, end: 20181218
  3. SPIRICORT [Suspect]
     Active Substance: PREDNISOLONE
     Dosage: 70 MG, CYCLIC (ON DAYS 2 TO 5)
     Route: 048
     Dates: start: 20190130, end: 20190202
  4. PANTOPRAZOL SANDOZ [Concomitant]
     Active Substance: PANTOPRAZOLE SODIUM
     Dosage: 20 MG, 1X/DAY (1-0-0-0)
     Route: 048
  5. MABTHERA [Suspect]
     Active Substance: RITUXIMAB
     Indication: DIFFUSE LARGE B-CELL LYMPHOMA
     Dosage: 670 MG, CYCLIC (CYCLE 1)
     Route: 042
     Dates: start: 20181008, end: 20181008
  6. MABTHERA [Suspect]
     Active Substance: RITUXIMAB
     Dosage: 670 MG, CYCLIC (CYCLE 5)
     Route: 042
     Dates: start: 20190109, end: 20190109
  7. VALTREX [Concomitant]
     Active Substance: VALACYCLOVIR HYDROCHLORIDE
     Dosage: 500 MG, 1X/DAY (1-0-0-0)
     Route: 048
  8. ADRIBLASTIN [Suspect]
     Active Substance: DOXORUBICIN HYDROCHLORIDE
     Dosage: 45 MG, CYCLIC (CYCLE 3)
     Route: 042
     Dates: start: 20181127, end: 20181127
  9. SPIRICORT [Suspect]
     Active Substance: PREDNISOLONE
     Dosage: 70 MG, CYCLIC (ON DAYS 2 TO 5)
     Route: 048
     Dates: start: 20190110, end: 20190113
  10. EUTHYROX [Concomitant]
     Active Substance: LEVOTHYROXINE SODIUM
     Dosage: 100 UG, 1X/DAY (1-0-0-0)
     Route: 048
  11. BACTRIM [Concomitant]
     Active Substance: SULFAMETHOXAZOLE\TRIMETHOPRIM
     Dosage: 0.5 DF, DAILY (0.5-0-0-0, MO, WEDS, FRI)
     Route: 048
  12. ADRIBLASTIN [Suspect]
     Active Substance: DOXORUBICIN HYDROCHLORIDE
     Dosage: 45 MG, CYCLIC (CYCLE 6)
     Route: 042
     Dates: start: 20190129, end: 20190129
  13. MABTHERA [Suspect]
     Active Substance: RITUXIMAB
     Dosage: 670 MG, CYCLIC (CYCLE 6)
     Route: 042
     Dates: start: 20190129, end: 20190129
  14. ENDOXAN [Suspect]
     Active Substance: CYCLOPHOSPHAMIDE
     Indication: DIFFUSE LARGE B-CELL LYMPHOMA
     Dosage: 700 MG, CYCLIC (CYCLE 1)
     Route: 042
     Dates: start: 20181008, end: 20181008
  15. ENDOXAN [Suspect]
     Active Substance: CYCLOPHOSPHAMIDE
     Dosage: 650 MG, CYCLIC (CYCLE 6)
     Route: 042
     Dates: start: 20190129, end: 20190129
  16. SPIRICORT [Suspect]
     Active Substance: PREDNISOLONE
     Dosage: 70 MG, CYCLIC (ON DAYS 2 TO 5)
     Route: 048
     Dates: start: 20181128, end: 20181201
  17. ASPIRIN CARDIO [Concomitant]
     Active Substance: ASPIRIN
     Dosage: 100 MG, 1X/DAY (1-0-0-0)
     Route: 048
  18. VINCRISTINE SULFATE. [Suspect]
     Active Substance: VINCRISTINE SULFATE
     Dosage: 1 MG, CYCLIC (CYCLE 2)
     Route: 042
     Dates: start: 20181106, end: 20181106
  19. VINCRISTINE SULFATE. [Suspect]
     Active Substance: VINCRISTINE SULFATE
     Dosage: 1 MG, CYCLIC (CYCLE 3)
     Route: 042
     Dates: start: 20181127, end: 20181127
  20. ADRIBLASTIN [Suspect]
     Active Substance: DOXORUBICIN HYDROCHLORIDE
     Dosage: 45 MG, CYCLIC (CYCLE 5)
     Route: 042
     Dates: start: 20190109, end: 20190109
  21. MABTHERA [Suspect]
     Active Substance: RITUXIMAB
     Dosage: 670 MG, CYCLIC (CYCLE 2)
     Route: 042
     Dates: start: 20181106, end: 20181106
  22. ENDOXAN [Suspect]
     Active Substance: CYCLOPHOSPHAMIDE
     Dosage: 700 MG, CYCLIC (CYCLE 2)
     Route: 042
     Dates: start: 20181106, end: 20181106
  23. PLAVIX [Concomitant]
     Active Substance: CLOPIDOGREL BISULFATE
     Dosage: 75 MG, 1X/DAY (1-0-0-0)
     Route: 048
  24. TOREM [TORASEMIDE] [Concomitant]
     Active Substance: TORSEMIDE
     Dosage: 10 MG, UNK (1-0-0-0)
     Route: 048
  25. CRESTOR [Concomitant]
     Active Substance: ROSUVASTATIN CALCIUM
     Dosage: 20 MG, 1X/DAY (1-0-0-0)
     Route: 048
  26. BIOFLORIN [Concomitant]
     Dosage: 1 DF, 1X/DAY (1-0-0-0)
     Route: 048
  27. VINCRISTINE SULFATE. [Suspect]
     Active Substance: VINCRISTINE SULFATE
     Indication: DIFFUSE LARGE B-CELL LYMPHOMA
     Dosage: 1 MG, CYCLIC (CYCLE 1)
     Route: 042
     Dates: start: 20181008, end: 20181008
  28. VINCRISTINE SULFATE. [Suspect]
     Active Substance: VINCRISTINE SULFATE
     Dosage: 1 MG, CYCLIC (CYCLE 4)
     Route: 042
     Dates: start: 20181218, end: 20181218
  29. VINCRISTINE SULFATE. [Suspect]
     Active Substance: VINCRISTINE SULFATE
     Dosage: 1 MG, CYCLIC (CYCLE 5)
     Route: 042
     Dates: start: 20190109, end: 20190109
  30. VINCRISTINE SULFATE. [Suspect]
     Active Substance: VINCRISTINE SULFATE
     Dosage: 1 MG, CYCLIC (CYCLE 6)
     Route: 042
     Dates: start: 20190129, end: 20190129
  31. ENDOXAN [Suspect]
     Active Substance: CYCLOPHOSPHAMIDE
     Dosage: 650 MG, CYCLIC (CYCLE 5)
     Route: 042
     Dates: start: 20190109, end: 20190109
  32. SPIRICORT [Suspect]
     Active Substance: PREDNISOLONE
     Indication: DIFFUSE LARGE B-CELL LYMPHOMA
     Dosage: 70 MG, CYCLIC (ON DAYS 2 TO 5)
     Route: 048
     Dates: start: 20181009, end: 20181012
  33. SPIRICORT [Suspect]
     Active Substance: PREDNISOLONE
     Dosage: 70 MG, CYCLIC (ON DAYS 2 TO 5)
     Route: 048
     Dates: start: 20181107, end: 20181110
  34. ADRIBLASTIN [Suspect]
     Active Substance: DOXORUBICIN HYDROCHLORIDE
     Indication: DIFFUSE LARGE B-CELL LYMPHOMA
     Dosage: 45 MG, CYCLIC (CYCLE 1)
     Route: 042
     Dates: start: 20181008, end: 20181008
  35. ADRIBLASTIN [Suspect]
     Active Substance: DOXORUBICIN HYDROCHLORIDE
     Dosage: 45 MG, CYCLIC (CYCLE 2)
     Route: 042
     Dates: start: 20181106, end: 20181106
  36. ADRIBLASTIN [Suspect]
     Active Substance: DOXORUBICIN HYDROCHLORIDE
     Dosage: 45 MG, CYCLIC (CYCLE 4)
     Route: 042
     Dates: start: 20181218, end: 20181218
  37. ENDOXAN [Suspect]
     Active Substance: CYCLOPHOSPHAMIDE
     Dosage: 700 MG, CYCLIC (CYCLE 3)
     Route: 042
     Dates: start: 20181127, end: 20181127
  38. ENDOXAN [Suspect]
     Active Substance: CYCLOPHOSPHAMIDE
     Dosage: 700 MG, CYCLIC (CYCLE 4)
     Route: 042
     Dates: start: 20181218, end: 20181218
  39. SPIRICORT [Suspect]
     Active Substance: PREDNISOLONE
     Dosage: 70 MG, CYCLIC (ON DAYS 2 TO 5)
     Route: 048
     Dates: start: 20181219, end: 20181222
  40. NEBIVOLOL SANDOZ [Concomitant]
     Active Substance: NEBIVOLOL
     Dosage: 5 MG, 1X/DAY (1-0-0-0)
     Route: 048
  41. ZYLORIC [Concomitant]
     Active Substance: ALLOPURINOL
     Dosage: 100 MG, 1X/DAY (1-0-0-0)
     Route: 048

REACTIONS (5)
  - Cardiac failure [Recovered/Resolved]
  - Left ventricular failure [Recovered/Resolved]
  - Pneumonia [Recovered/Resolved]
  - Oedema [Recovered/Resolved]
  - Dyspnoea exertional [Recovered/Resolved]

NARRATIVE: CASE EVENT DATE: 20190129
